FAERS Safety Report 8422163-3 (Version None)
Quarter: 2012Q2

REPORT INFORMATION
  Report Type: 
  Country: None (occurrence: None)
  Receive Date: 20120608
  Receipt Date: 20120523
  Transmission Date: 20120825
  Serious: Yes (Other)
  Sender: FDA-Public Use
  Company Number: DE-GILEAD-2012-0056215

PATIENT
  Age: 24 Year
  Sex: Male

DRUGS (2)
  1. ATRIPLA [Suspect]
     Indication: HIV INFECTION
     Dosage: UNK
     Dates: start: 20100501, end: 20120301
  2. CITALOPRAM HYDROBROMIDE [Concomitant]
     Indication: MENTAL DISORDER
     Dosage: UNK
     Dates: start: 20120301

REACTIONS (7)
  - ROAD TRAFFIC ACCIDENT [None]
  - NERVOUSNESS [None]
  - MIDDLE INSOMNIA [None]
  - ANXIETY [None]
  - FATIGUE [None]
  - MEMORY IMPAIRMENT [None]
  - SOMNOLENCE [None]
